FAERS Safety Report 9262999 (Version 1)
Quarter: 2013Q2

REPORT INFORMATION
  Report Type: Spontaneous
  Country: US (occurrence: US)
  Receive Date: 20130430
  Receipt Date: 20130430
  Transmission Date: 20140414
  Serious: Yes (Other)
  Sender: FDA-Public Use
  Company Number: US-BAYER-2013-052093

PATIENT
  Age: 50 Year
  Sex: Female

DRUGS (4)
  1. YASMIN [Suspect]
  2. RITALIN [Concomitant]
     Dosage: 100 MG, UNK
     Route: 048
  3. ETODOLAC [Concomitant]
     Dosage: 500 MG, UNK
     Route: 048
  4. SULFAMETHOXAZOLE/TRIMETHOPRIM [Concomitant]
     Dosage: TAB 7 DAYS
     Route: 048

REACTIONS (2)
  - Cholecystitis acute [None]
  - Thrombophlebitis superficial [None]
